FAERS Safety Report 12615379 (Version 1)
Quarter: 2016Q3

REPORT INFORMATION
  Report Type: Report from Study
  Country: JP (occurrence: JP)
  Receive Date: 20160802
  Receipt Date: 20160802
  Transmission Date: 20161109
  Serious: Yes (Life-Threatening, Other)
  Sender: FDA-Public Use
  Company Number: JP-OTSUKA-2016_018384

PATIENT
  Age: 80 Year
  Sex: Male
  Weight: 69 kg

DRUGS (18)
  1. SPIRONOLACTONE. [Suspect]
     Active Substance: SPIRONOLACTONE
     Indication: FLUID RETENTION
     Dosage: 50 MG, DAILY DOSE
     Route: 048
     Dates: end: 20160318
  2. LIVACT [Concomitant]
     Active Substance: AMINO ACIDS
     Indication: PRODUCT USED FOR UNKNOWN INDICATION
     Dosage: 12.45 MG, DAILY DOSE
     Route: 048
  3. OTSUKA NORMAL SALINE [Concomitant]
     Indication: FLUID REPLACEMENT
     Dosage: 500 ML, DAILY DOSE
     Route: 042
     Dates: start: 20160308, end: 20160309
  4. FURUSEMIDE [Suspect]
     Active Substance: FUROSEMIDE
     Indication: FLUID RETENTION
     Dosage: 20 MG, DAILY DOSE
     Route: 042
     Dates: start: 20160504, end: 20160508
  5. SUREPOST [Concomitant]
     Active Substance: REPAGLINIDE
     Dosage: 0.25 MG, DAILY DOSE
     Route: 048
     Dates: start: 20160318, end: 20160504
  6. SENNOSIDE A+B CALCIUM [Concomitant]
     Active Substance: SENNOSIDES A AND B
     Indication: PRODUCT USED FOR UNKNOWN INDICATION
     Dosage: 24 MG, PRN
     Route: 048
  7. OTSUKA NORMAL SALINE [Concomitant]
     Dosage: 100 ML, DAILY DOSE
     Route: 042
     Dates: start: 20160311, end: 20160311
  8. FUROSEMIDE. [Suspect]
     Active Substance: FUROSEMIDE
     Indication: FLUID RETENTION
     Dosage: 20 MG, DAILY DOSE
     Route: 048
     Dates: end: 20160508
  9. SUREPOST [Concomitant]
     Active Substance: REPAGLINIDE
     Indication: PRODUCT USED FOR UNKNOWN INDICATION
     Dosage: 0.25 MG, DAILY DOSE
     Route: 048
     Dates: end: 20160317
  10. TOLVAPTAN [Suspect]
     Active Substance: TOLVAPTAN
     Dosage: 7.5MG, QD IN THE MORNING
     Route: 048
     Dates: start: 20160315, end: 20160508
  11. CALONAL [Concomitant]
     Active Substance: ACETAMINOPHEN
     Indication: PYREXIA
     Dosage: 1 G, PRN
     Route: 048
  12. SPIRONOLACTONE. [Suspect]
     Active Substance: SPIRONOLACTONE
     Dosage: 25 MG, DAILY DOSE
     Route: 048
     Dates: start: 20160319, end: 20160508
  13. LANSOPRAZOLE. [Concomitant]
     Active Substance: LANSOPRAZOLE
     Indication: PRODUCT USED FOR UNKNOWN INDICATION
     Dosage: 15 MG, DAILY DOSE
     Route: 048
  14. CALONAL [Concomitant]
     Active Substance: ACETAMINOPHEN
     Indication: PAIN
  15. OTSUKA NORMAL SALINE [Concomitant]
     Dosage: 100 ML, DAILY DOSE
     Route: 042
     Dates: start: 20160314, end: 20160314
  16. TOLVAPTAN [Suspect]
     Active Substance: TOLVAPTAN
     Indication: FLUID RETENTION
     Dosage: 3.75 MG, QD IN THE MORNING
     Route: 048
     Dates: start: 20160301, end: 20160314
  17. KENKETU ALBUMIN 25% I.V. BENESIS [Concomitant]
     Indication: FLUID REPLACEMENT
     Dosage: 100 ML, DAILY DOSE
     Route: 042
     Dates: start: 20160506, end: 20160506
  18. URSODEOXYCHOLIC ACID [Concomitant]
     Active Substance: URSODIOL
     Indication: PRODUCT USED FOR UNKNOWN INDICATION
     Dosage: 600 MG, DAILY DOSE
     Route: 048

REACTIONS (6)
  - Aspartate aminotransferase increased [Unknown]
  - Alanine aminotransferase increased [Unknown]
  - Hepatic failure [None]
  - Thirst [Recovered/Resolved]
  - Dehydration [Unknown]
  - Hepatic encephalopathy [Not Recovered/Not Resolved]

NARRATIVE: CASE EVENT DATE: 20160302
